FAERS Safety Report 20836022 (Version 4)
Quarter: 2022Q4

REPORT INFORMATION
  Report Type: Report from Study
  Country: CA (occurrence: CA)
  Receive Date: 20220516
  Receipt Date: 20221216
  Transmission Date: 20230113
  Serious: Yes (Hospitalization, Other)
  Sender: FDA-Public Use
  Company Number: CA-BRISTOL-MYERS SQUIBB COMPANY-2022-031319

PATIENT
  Age: 67 Year
  Sex: Male
  Weight: 105.00 kg

DRUGS (18)
  1. REBLOZYL [Suspect]
     Active Substance: LUSPATERCEPT-AAMT
     Indication: Myelodysplastic syndrome
     Dosage: ASSOCIATED TREATMENT DATE: 02-AUG-2022LOT#: CPTJ08P EXP 30-SEP-2023 / CPTH050 EXP 31-JUL-2023
     Route: 058
     Dates: start: 20220118
  2. REBLOZYL [Suspect]
     Active Substance: LUSPATERCEPT-AAMT
     Dosage: DOSE: 0.80 MILLIGRAM, FREQ: 3 WEEKS
     Route: 050
     Dates: start: 20220118
  3. REBLOZYL [Suspect]
     Active Substance: LUSPATERCEPT-AAMT
     Route: 058
     Dates: start: 20210928
  4. REBLOZYL [Suspect]
     Active Substance: LUSPATERCEPT-AAMT
     Route: 058
     Dates: start: 20211111
  5. REBLOZYL [Suspect]
     Active Substance: LUSPATERCEPT-AAMT
  6. REBLOZYL [Suspect]
     Active Substance: LUSPATERCEPT-AAMT
     Route: 058
     Dates: start: 20220802
  7. REBLOZYL [Suspect]
     Active Substance: LUSPATERCEPT-AAMT
     Dosage: LOT#: CPTJ08P EXP 30-SEP-2023?FREQUENCY : 3 WEEKS
     Route: 058
  8. REBLOZYL [Suspect]
     Active Substance: LUSPATERCEPT-AAMT
     Dates: start: 20220823
  9. REBLOZYL [Suspect]
     Active Substance: LUSPATERCEPT-AAMT
     Dosage: 3 WEEKS
     Route: 058
  10. REBLOZYL [Suspect]
     Active Substance: LUSPATERCEPT-AAMT
     Dosage: 3 WEEKS
     Route: 058
     Dates: start: 20220118
  11. REBLOZYL [Suspect]
     Active Substance: LUSPATERCEPT-AAMT
     Dosage: 3 WEEKS
     Route: 058
     Dates: start: 20220118
  12. REBLOZYL [Suspect]
     Active Substance: LUSPATERCEPT-AAMT
     Dosage: 3 WEEKS
     Route: 058
  13. METFORMIN [Concomitant]
     Active Substance: METFORMIN HYDROCHLORIDE
     Indication: Product used for unknown indication
     Route: 048
  14. JARDIANCE [Concomitant]
     Active Substance: EMPAGLIFLOZIN
     Indication: Product used for unknown indication
     Dosage: UNK
  15. Lantus 40 [Concomitant]
     Indication: Product used for unknown indication
     Dosage: 40
     Route: 058
  16. PERINDOPRIL [Concomitant]
     Active Substance: PERINDOPRIL
     Indication: Product used for unknown indication
     Dosage: 40
     Route: 048
  17. Glyclazide [Concomitant]
     Indication: Product used for unknown indication
  18. RAMIPRIL [Concomitant]
     Active Substance: RAMIPRIL
     Indication: Product used for unknown indication
     Dates: start: 20220209, end: 20220524

REACTIONS (13)
  - Blood pressure increased [Recovering/Resolving]
  - Blood pressure diastolic decreased [Unknown]
  - Product dose omission issue [Unknown]
  - Weight increased [Unknown]
  - Peripheral swelling [Recovering/Resolving]
  - Blood glucose decreased [Recovering/Resolving]
  - Oedema peripheral [Recovering/Resolving]
  - Weight decreased [Not Recovered/Not Resolved]
  - Prescribed underdose [Unknown]
  - Blood pressure systolic increased [Recovering/Resolving]
  - Heart rate increased [Unknown]
  - Haemoglobin decreased [Recovered/Resolved]
  - Drug ineffective [Unknown]

NARRATIVE: CASE EVENT DATE: 20220101
